FAERS Safety Report 6738396-8 (Version None)
Quarter: 2010Q2

REPORT INFORMATION
  Report Type: 
  Country: None (occurrence: None)
  Receive Date: 20100520
  Receipt Date: 20100510
  Transmission Date: 20101027
  Serious: Yes (Other)
  Sender: FDA-Public Use
  Company Number: 011653

PATIENT
  Sex: Male
  Weight: 68 kg

DRUGS (2)
  1. NEUPRO [Suspect]
     Indication: PARKINSON'S DISEASE
     Dosage: TRANSDERMAL, INCREASED DOSE TRANSDERMAL
     Route: 062
  2. SINEMET [Suspect]
     Indication: PARKINSON'S DISEASE
     Dosage: 125 MG TID ORAL
     Route: 048
     Dates: start: 20100129, end: 20100203

REACTIONS (1)
  - DELIRIUM [None]
